FAERS Safety Report 8563889-0 (Version None)
Quarter: 2012Q3

REPORT INFORMATION
  Report Type: 
  Country: None (occurrence: None)
  Receive Date: 20120713
  Receipt Date: 20120628
  Transmission Date: 20120928
  Serious: Yes (Hospitalization)
  Sender: FDA-Public Use
  Company Number: 2012PROUSA01378

PATIENT
  Age: 66 Year
  Sex: Male
  Weight: 93 kg

DRUGS (8)
  1. LUPRON [Concomitant]
  2. PROVENGE [Suspect]
     Indication: PROSTATE CANCER METASTATIC
     Dosage: 250 ML, SINGLE, INTRAVENOUS
     Route: 042
     Dates: start: 20120319, end: 20120319
  3. PROVENGE [Suspect]
     Indication: PROSTATE CANCER METASTATIC
     Dosage: 250 ML, SINGLE, INTRAVENOUS
     Route: 042
     Dates: start: 20120413, end: 20120413
  4. CALCIUM (CALCIUM GLUCONATE) [Concomitant]
  5. MEGACE [Concomitant]
  6. XGEVA [Concomitant]
  7. PROVENGE [Suspect]
  8. NAPROXEN [Concomitant]

REACTIONS (4)
  - STAPHYLOCOCCAL BACTERAEMIA [None]
  - DEVICE RELATED INFECTION [None]
  - ATELECTASIS [None]
  - ERYTHEMA [None]
